FAERS Safety Report 14053774 (Version 3)
Quarter: 2018Q1

REPORT INFORMATION
  Report Type: Report from Study
  Country: US (occurrence: US)
  Receive Date: 20171005
  Receipt Date: 20180131
  Transmission Date: 20180508
  Serious: Yes (Death, Hospitalization, Other)
  Sender: FDA-Public Use
  Company Number: US-GILEAD-2017-0296365

PATIENT

DRUGS (11)
  1. RANOLAZINE. [Suspect]
     Active Substance: RANOLAZINE
     Indication: VENTRICULAR ARRHYTHMIA
     Route: 065
  2. METOPROLOL. [Concomitant]
     Active Substance: METOPROLOL
     Dosage: 100 MG, BID
  3. SIMVASTATIN. [Concomitant]
     Active Substance: SIMVASTATIN
  4. MATURE MULTIVITAMINS [Concomitant]
  5. WARFARIN [Concomitant]
     Active Substance: WARFARIN
  6. ENALAPRIL [Concomitant]
     Active Substance: ENALAPRIL
  7. ASPIRIN                            /00002701/ [Concomitant]
     Active Substance: ASPIRIN
  8. FUROSEMIDE. [Concomitant]
     Active Substance: FUROSEMIDE
  9. POTASSIUM CHLORIDE. [Concomitant]
     Active Substance: POTASSIUM CHLORIDE
  10. DIGOXIN. [Concomitant]
     Active Substance: DIGOXIN
  11. ISOSORBIDE MONONITRATE. [Concomitant]
     Active Substance: ISOSORBIDE MONONITRATE

REACTIONS (6)
  - Muscular weakness [Unknown]
  - Cardiac failure [Unknown]
  - Cardiac failure [Fatal]
  - Weight increased [Unknown]
  - Paraesthesia [Unknown]
  - Nausea [Unknown]
